FAERS Safety Report 4406425-2 (Version None)
Quarter: 2004Q3

REPORT INFORMATION
  Report Type: 
  Country: None (occurrence: None)
  Receive Date: 20040723
  Receipt Date: 20030728
  Transmission Date: 20050211
  Serious: No
  Sender: FDA-Public Use
  Company Number: US-GLAXOSMITHKLINE-A0418456A

PATIENT
  Age: 78 Year
  Sex: Male

DRUGS (4)
  1. AVANDIA [Suspect]
     Dosage: 4MG TWICE PER DAY
     Route: 048
     Dates: start: 20010701
  2. PREVACID [Concomitant]
  3. COREG [Concomitant]
  4. LIPITOR [Concomitant]

REACTIONS (1)
  - FATIGUE [None]
